FAERS Safety Report 16979423 (Version 2)
Quarter: 2019Q4

REPORT INFORMATION
  Report Type: Spontaneous
  Country: LU (occurrence: LU)
  Receive Date: 20191031
  Receipt Date: 20191107
  Transmission Date: 20200122
  Serious: Yes (Other)
  Sender: FDA-Public Use
  Company Number: LU-PFIZER INC-2019464951

PATIENT
  Sex: Female

DRUGS (2)
  1. XELJANZ [Suspect]
     Active Substance: TOFACITINIB CITRATE
     Indication: COLITIS ULCERATIVE
     Dosage: 10 MG, UNK
  2. XELJANZ [Suspect]
     Active Substance: TOFACITINIB CITRATE
     Dosage: 5 MG, UNK

REACTIONS (1)
  - Colitis ulcerative [Not Recovered/Not Resolved]
